FAERS Safety Report 6182858-1 (Version None)
Quarter: 2009Q2

REPORT INFORMATION
  Report Type: 
  Country: None (occurrence: None)
  Receive Date: 20090507
  Receipt Date: 20090429
  Transmission Date: 20091009
  Serious: Yes (Other)
  Sender: FDA-Public Use
  Company Number: CN-ASTRAZENECA-2009AP02943

PATIENT
  Age: 53 Year
  Sex: Female
  Weight: 55 kg

DRUGS (2)
  1. LIDOCAINE [Suspect]
     Indication: ANAESTHESIA
  2. BUPIVACAINE [Concomitant]
     Indication: ANAESTHESIA

REACTIONS (4)
  - APHONIA [None]
  - DYSKINESIA [None]
  - FACIAL PARESIS [None]
  - RESPIRATORY RATE INCREASED [None]
